FAERS Safety Report 4480001-8 (Version None)
Quarter: 2004Q4

REPORT INFORMATION
  Report Type: 
  Country: None (occurrence: None)
  Receive Date: 20041018
  Receipt Date: 20041008
  Transmission Date: 20050328
  Serious: Yes (Disabling)
  Sender: FDA-Public Use
  Company Number: HQWYE294421JUL04

PATIENT
  Age: 84 Year
  Sex: Female
  Weight: 74.91 kg

DRUGS (2)
  1. CORDARONE [Suspect]
     Indication: ATRIAL FIBRILLATION
     Dosage: 300 MG X 5 MONTHS; 100 MG X 6 MONTHS, ORAL
     Route: 048
     Dates: start: 20020801, end: 20030716
  2. SYNTHROID [Concomitant]

REACTIONS (20)
  - ANXIETY [None]
  - ASTHENIA [None]
  - BALANCE DISORDER [None]
  - BLOOD CHOLESTEROL INCREASED [None]
  - BLOOD THYROID STIMULATING HORMONE INCREASED [None]
  - BLOOD TRIGLYCERIDES INCREASED [None]
  - CONFUSIONAL STATE [None]
  - CONSTIPATION [None]
  - DIFFICULTY IN WALKING [None]
  - DROOLING [None]
  - HALO VISION [None]
  - HYPOAESTHESIA [None]
  - MUSCULAR WEAKNESS [None]
  - NEURITIS [None]
  - OEDEMA PERIPHERAL [None]
  - PAIN IN EXTREMITY [None]
  - SKIN PAPILLOMA [None]
  - SLEEP DISORDER [None]
  - VISUAL ACUITY REDUCED [None]
  - WEIGHT INCREASED [None]
